FAERS Safety Report 26000873 (Version 1)
Quarter: 2025Q4

REPORT INFORMATION
  Report Type: Spontaneous
  Country: US (occurrence: US)
  Receive Date: 20251105
  Receipt Date: 20251105
  Transmission Date: 20260119
  Serious: No
  Sender: ABBVIE
  Company Number: US-ABBVIE-6532999

PATIENT

DRUGS (1)
  1. RINVOQ [Suspect]
     Active Substance: UPADACITINIB
     Indication: Crohn^s disease
     Route: 048
     Dates: start: 202505

REACTIONS (7)
  - Chills [Not Recovered/Not Resolved]
  - Diarrhoea [Unknown]
  - Erythema [Unknown]
  - Abdominal distension [Unknown]
  - Abdominal pain [Unknown]
  - Dysgeusia [Unknown]
  - Feeling hot [Unknown]

NARRATIVE: CASE EVENT DATE: 20250101
